FAERS Safety Report 5191537-9 (Version None)
Quarter: 2006Q4

REPORT INFORMATION
  Report Type: 
  Country: None (occurrence: None)
  Receive Date: 20061219
  Receipt Date: 20061206
  Transmission Date: 20070319
  Serious: Yes (Hospitalization, Other)
  Sender: FDA-Public Use
  Company Number: 2006104114

PATIENT
  Age: 62 Year
  Sex: Female
  Weight: 70.3075 kg

DRUGS (5)
  1. DILANTIN [Suspect]
     Indication: PETIT MAL EPILEPSY
     Dates: start: 20030701, end: 20030801
  2. LIPITOR [Concomitant]
  3. ZYRTEC (ATORVASTATIN) [Concomitant]
  4. ACIPHEX [Concomitant]
  5. ACIPHEX [Concomitant]

REACTIONS (16)
  - ANAEMIA [None]
  - CHILLS [None]
  - DRUG HYPERSENSITIVITY [None]
  - ENTEROBACTER INFECTION [None]
  - ERYTHEMA MULTIFORME [None]
  - HEADACHE [None]
  - HYPERGLYCAEMIA [None]
  - HYPONATRAEMIA [None]
  - KLEBSIELLA INFECTION [None]
  - MOBILITY DECREASED [None]
  - NAUSEA [None]
  - ORAL INTAKE REDUCED [None]
  - SCAR [None]
  - STAPHYLOCOCCAL INFECTION [None]
  - TOXIC EPIDERMAL NECROLYSIS [None]
  - VOMITING [None]
